FAERS Safety Report 9636265 (Version 1)
Quarter: 2013Q4

REPORT INFORMATION
  Report Type: Spontaneous
  Country: DE (occurrence: DE)
  Receive Date: 20131021
  Receipt Date: 20131021
  Transmission Date: 20140711
  Serious: Yes (Other)
  Sender: FDA-Public Use
  Company Number: DE-ASTRAZENECA-2012SE89444

PATIENT
  Age: 29 Year
  Sex: Male

DRUGS (1)
  1. SEROQUEL PROLONG [Suspect]
     Indication: SCHIZOPHRENIA, PARANOID TYPE
     Route: 048
     Dates: start: 20120410

REACTIONS (4)
  - Haematemesis [Recovered/Resolved]
  - Gastrooesophageal reflux disease [Recovered/Resolved]
  - Liver disorder [Recovered/Resolved]
  - Oesophageal ulcer [Recovered/Resolved]
